FAERS Safety Report 18385298 (Version 10)
Quarter: 2025Q3

REPORT INFORMATION
  Report Type: Report from Study
  Country: CA (occurrence: CA)
  Receive Date: 20201015
  Receipt Date: 20250730
  Transmission Date: 20251021
  Serious: Yes (Other)
  Sender: ROCHE
  Company Number: CA-ROCHE-2411060

PATIENT
  Age: 38 Year
  Sex: Female
  Weight: 127 kg

DRUGS (11)
  1. OCRELIZUMAB [Suspect]
     Active Substance: OCRELIZUMAB
     Indication: Relapsing-remitting multiple sclerosis
     Dosage: MORE DOSAGE INFORMATION IS 300 MG AT DAY 0 AND 14, THEN 600 MG EVERY 6 MONTHS
     Route: 042
     Dates: start: 20190910
  2. OCRELIZUMAB [Suspect]
     Active Substance: OCRELIZUMAB
     Dosage: MORE DOSAGE INFORMATION IS 300 MG AT DAY 0 AND 14, THEN 600 MG EVERY 6 MONTHS
     Route: 042
  3. OCRELIZUMAB [Suspect]
     Active Substance: OCRELIZUMAB
     Route: 042
  4. EBASTINE [Concomitant]
     Active Substance: EBASTINE
  5. CARBAMAZEPINE [Concomitant]
     Active Substance: CARBAMAZEPINE
     Indication: Neuralgia
     Route: 048
  6. PROGESTERONE [Concomitant]
     Active Substance: PROGESTERONE
  7. CAMBIA [Concomitant]
     Active Substance: DICLOFENAC POTASSIUM
     Indication: Migraine
  8. FERROUS FUMARATE [Concomitant]
     Active Substance: FERROUS FUMARATE
  9. SOLU-MEDROL [Concomitant]
     Active Substance: METHYLPREDNISOLONE SODIUM SUCCINATE
  10. TYLENOL [Concomitant]
     Active Substance: ACETAMINOPHEN
  11. BENADRYL [Concomitant]
     Active Substance: DIPHENHYDRAMINE HYDROCHLORIDE

REACTIONS (11)
  - Infusion related reaction [Recovered/Resolved]
  - Infusion related reaction [Recovered/Resolved]
  - Fatigue [Recovering/Resolving]
  - Hypoaesthesia [Not Recovered/Not Resolved]
  - Syncope [Unknown]
  - Hypersomnia [Unknown]
  - Blood iron decreased [Unknown]
  - Vitamin B12 deficiency [Unknown]
  - Influenza [Recovering/Resolving]
  - Throat irritation [Recovered/Resolved]
  - Chest discomfort [Recovered/Resolved]

NARRATIVE: CASE EVENT DATE: 20190910
